FAERS Safety Report 9432719 (Version 1)
Quarter: 2013Q3

REPORT INFORMATION
  Report Type: Spontaneous
  Country: KR (occurrence: KR)
  Receive Date: 20130729
  Receipt Date: 20130729
  Transmission Date: 20140515
  Serious: Yes (Hospitalization)
  Sender: FDA-Public Use
  Company Number: TPA2013A07107

PATIENT
  Age: 76 Year
  Sex: Male

DRUGS (3)
  1. FEBURIC [Suspect]
     Indication: HYPERURICAEMIA
     Route: 048
     Dates: start: 20130624, end: 20130627
  2. ANTIHYPERTENSIVE AGENT (ANTIHYPERTENSIVES) [Concomitant]
  3. ANTIDIABETIC AGENT (DRUG USED IN DIABETES) [Concomitant]

REACTIONS (2)
  - Shock [None]
  - Rash generalised [None]
